FAERS Safety Report 18200033 (Version 1)
Quarter: 2020Q3

REPORT INFORMATION
  Report Type: Spontaneous
  Country: GB (occurrence: GB)
  Receive Date: 20200827
  Receipt Date: 20200827
  Transmission Date: 20201103
  Serious: Yes (Other)
  Sender: FDA-Public Use
  Company Number: GB-AMGEN-GBRSP2020136585

PATIENT
  Age: 55 Year
  Sex: Male

DRUGS (7)
  1. REPATHA [Suspect]
     Active Substance: EVOLOCUMAB
     Indication: HYPERCHOLESTEROLAEMIA
     Dosage: 140 MILLIGRAM, Q2WK
     Route: 058
     Dates: start: 20200623, end: 20200721
  2. ACETYLSALICYLIC ACID [Concomitant]
     Active Substance: ASPIRIN
  3. DABRAFENIB [Concomitant]
     Active Substance: DABRAFENIB
     Indication: NEOPLASM MALIGNANT
  4. SILDENAFIL. [Concomitant]
     Active Substance: SILDENAFIL
  5. RAMIPRIL. [Concomitant]
     Active Substance: RAMIPRIL
  6. TRAMETINIB [Concomitant]
     Active Substance: TRAMETINIB
     Indication: NEOPLASM MALIGNANT
  7. BISOPROLOL [Concomitant]
     Active Substance: BISOPROLOL

REACTIONS (2)
  - Dyspnoea [Recovered/Resolved]
  - Malaise [Recovered/Resolved]

NARRATIVE: CASE EVENT DATE: 20200623
